FAERS Safety Report 13195837 (Version 1)
Quarter: 2017Q1

REPORT INFORMATION
  Report Type: Spontaneous
  Country: US (occurrence: US)
  Receive Date: 20170207
  Receipt Date: 20170207
  Transmission Date: 20170428
  Serious: Yes (Other)
  Sender: FDA-Public Use
  Company Number: None

PATIENT
  Age: 64 Year
  Sex: Male
  Weight: 114.7 kg

DRUGS (4)
  1. JUBLIA [Suspect]
     Active Substance: EFINACONAZOLE
     Indication: ONYCHOMYCOSIS
     Dosage: AT BEDTIME 1 OUNCE(S); APPLY TO AFFECTED NAILS?
  2. DIOVAN [Concomitant]
     Active Substance: VALSARTAN
  3. VITAMINS [Concomitant]
     Active Substance: VITAMINS
  4. PROCARDIA [Concomitant]
     Active Substance: NIFEDIPINE

REACTIONS (3)
  - Erythema [None]
  - Skin exfoliation [None]
  - Blister [None]

NARRATIVE: CASE EVENT DATE: 20170102
